FAERS Safety Report 6604649-7 (Version None)
Quarter: 2010Q1

REPORT INFORMATION
  Report Type: 
  Country: None (occurrence: None)
  Receive Date: 20100226
  Receipt Date: 20100216
  Transmission Date: 20100710
  Serious: Yes (Hospitalization)
  Sender: FDA-Public Use
  Company Number: US-ROCHE-680356

PATIENT
  Sex: Male

DRUGS (2)
  1. PEGASYS [Suspect]
     Indication: HEPATITIS C
     Dosage: RECEIVED FOUR SHOTS
     Route: 065
     Dates: start: 20091209
  2. RIBASPHERE [Suspect]
     Indication: HEPATITIS C
     Dosage: DOSE: 3 PILLS/4 PILLS. FREQUENCY : QAM/QPM
     Route: 065
     Dates: start: 20091209

REACTIONS (11)
  - ASTHENIA [None]
  - CARDIAC ARREST [None]
  - COUGH [None]
  - DIARRHOEA [None]
  - GAIT DISTURBANCE [None]
  - MYALGIA [None]
  - MYOCARDIAL INFARCTION [None]
  - NAUSEA [None]
  - PALLOR [None]
  - PNEUMONIA [None]
  - VOMITING [None]
